FAERS Safety Report 14169943 (Version 2)
Quarter: 2018Q1

REPORT INFORMATION
  Report Type: Report from Study
  Country: JP (occurrence: JP)
  Receive Date: 20171108
  Receipt Date: 20180213
  Transmission Date: 20180508
  Serious: Yes (Hospitalization)
  Sender: FDA-Public Use
  Company Number: JP-EISAI MEDICAL RESEARCH-EC-2017-032824

PATIENT
  Age: 12 Year
  Sex: Male
  Weight: 21.2 kg

DRUGS (14)
  1. FYCOMPA [Suspect]
     Active Substance: PERAMPANEL
     Route: 048
     Dates: start: 20170905, end: 20170918
  2. CLARITH [Concomitant]
     Active Substance: CLARITHROMYCIN
  3. FYCOMPA [Suspect]
     Active Substance: PERAMPANEL
     Indication: EPILEPSY
     Route: 048
     Dates: start: 20170728, end: 20170803
  4. ARTANE [Concomitant]
     Active Substance: TRIHEXYPHENIDYL HYDROCHLORIDE
  5. DIAPP [Concomitant]
     Active Substance: DIAZEPAM
  6. FYCOMPA [Suspect]
     Active Substance: PERAMPANEL
     Indication: PARTIAL SEIZURES
     Route: 048
     Dates: start: 20170721, end: 20170727
  7. THYRADIN S [Concomitant]
     Active Substance: LEVOTHYROXINE SODIUM
  8. LAMICTAL [Concomitant]
     Active Substance: LAMOTRIGINE
  9. E KEPPRA [Concomitant]
     Active Substance: LEVETIRACETAM
  10. MYSTAN [Concomitant]
     Active Substance: CLOBAZAM
  11. DOPASTON [Concomitant]
     Active Substance: LEVODOPA
  12. FYCOMPA [Suspect]
     Active Substance: PERAMPANEL
     Indication: EPILEPSY
     Route: 048
     Dates: start: 20170804, end: 20170814
  13. FYCOMPA [Suspect]
     Active Substance: PERAMPANEL
     Route: 048
     Dates: start: 20160815, end: 20170904
  14. BONALON [Concomitant]
     Active Substance: ALENDRONATE SODIUM

REACTIONS (1)
  - Respiratory failure [Recovered/Resolved]

NARRATIVE: CASE EVENT DATE: 20170825
